FAERS Safety Report 4512732-5 (Version None)
Quarter: 2004Q4

REPORT INFORMATION
  Report Type: 
  Country: None (occurrence: None)
  Receive Date: 20040928
  Receipt Date: 20040702
  Transmission Date: 20050328
  Serious: No
  Sender: FDA-Public Use
  Company Number: 04P-163-0265622-00

PATIENT
  Age: 64 Year
  Sex: Male
  Weight: 117.9352 kg

DRUGS (3)
  1. HUMIRA [Suspect]
     Indication: RHEUMATOID ARTHRITIS
     Dosage: 40 MG, 1 IN 2 WK, SUBCUTANEOUS
     Route: 058
     Dates: start: 20040401
  2. PREDNISONE [Concomitant]
  3. DYAZIDE [Concomitant]

REACTIONS (6)
  - BREAST SWELLING [None]
  - COUGH [None]
  - DIZZINESS [None]
  - INJECTION SITE BURNING [None]
  - NIPPLE PAIN [None]
  - WEIGHT INCREASED [None]
